FAERS Safety Report 6270860-0 (Version None)
Quarter: 2009Q3

REPORT INFORMATION
  Report Type: 
  Country: None (occurrence: None)
  Receive Date: 20090716
  Receipt Date: 20090707
  Transmission Date: 20100115
  Serious: Yes (Other)
  Sender: FDA-Public Use
  Company Number: US-WYE-H10055309

PATIENT
  Sex: Female
  Weight: 81.27 kg

DRUGS (4)
  1. PRISTIQ [Suspect]
     Indication: PANIC ATTACK
     Route: 048
     Dates: start: 20090407, end: 20090618
  2. PRISTIQ [Suspect]
     Route: 048
     Dates: start: 20090619, end: 20090101
  3. PRISTIQ [Suspect]
     Route: 048
     Dates: start: 20090101, end: 20090703
  4. KLONOPIN [Concomitant]

REACTIONS (9)
  - AGITATION [None]
  - ANGER [None]
  - BLOOD TRIGLYCERIDES INCREASED [None]
  - DRUG WITHDRAWAL SYNDROME [None]
  - DRY MOUTH [None]
  - HYPERHIDROSIS [None]
  - IRRITABILITY [None]
  - SEXUAL DYSFUNCTION [None]
  - SUICIDAL IDEATION [None]
